FAERS Safety Report 8382550-9 (Version None)
Quarter: 2012Q2

REPORT INFORMATION
  Report Type: 
  Country: None (occurrence: None)
  Receive Date: 20120524
  Receipt Date: 20120514
  Transmission Date: 20120825
  Serious: Yes (Hospitalization, Other)
  Sender: FDA-Public Use
  Company Number: US-JNJFOC-20120512799

PATIENT
  Age: 68 Year
  Sex: Male
  Weight: 39.24 kg

DRUGS (6)
  1. DILTIAZEM [Concomitant]
  2. ATENOLOL [Concomitant]
  3. XARELTO [Suspect]
     Indication: ATRIAL FIBRILLATION
     Route: 048
  4. PRILOSEC [Concomitant]
  5. MULTIPLE VITAMIN [Concomitant]
  6. INDOMETHACIN [Concomitant]

REACTIONS (2)
  - CARDIAC FAILURE CONGESTIVE [None]
  - INTERNATIONAL NORMALISED RATIO INCREASED [None]
